FAERS Safety Report 8272390-3 (Version None)
Quarter: 2012Q2

REPORT INFORMATION
  Report Type: 
  Country: None (occurrence: None)
  Receive Date: 20120410
  Receipt Date: 20120327
  Transmission Date: 20120825
  Serious: Yes (Other)
  Sender: FDA-Public Use
  Company Number: CHPA2012US005997

PATIENT
  Age: 62 Year
  Sex: Female

DRUGS (1)
  1. EXCEDRIN PM CAPLETS [Suspect]
     Indication: INSOMNIA
     Dosage: 2 DF, QHS
     Route: 048

REACTIONS (4)
  - COMA [None]
  - INSOMNIA [None]
  - INCORRECT DRUG ADMINISTRATION DURATION [None]
  - AORTIC ANEURYSM [None]
